FAERS Safety Report 7682897-5 (Version None)
Quarter: 2011Q3

REPORT INFORMATION
  Report Type: 
  Country: None (occurrence: None)
  Receive Date: 20110815
  Receipt Date: 20110805
  Transmission Date: 20111222
  Serious: Yes (Hospitalization)
  Sender: FDA-Public Use
  Company Number: PHEH2011US00904

PATIENT
  Age: 70 Year
  Sex: Male
  Weight: 90.703 kg

DRUGS (1)
  1. AREDIA [Suspect]
     Dosage: 90 MG, Q4H
     Route: 042

REACTIONS (2)
  - CHEST PAIN [None]
  - DYSPNOEA [None]
